FAERS Safety Report 16418550 (Version 1)
Quarter: 2019Q2

REPORT INFORMATION
  Report Type: Spontaneous
  Country: GB (occurrence: GB)
  Receive Date: 20190612
  Receipt Date: 20190612
  Transmission Date: 20190711
  Serious: Yes (Hospitalization)
  Sender: FDA-Public Use
  Company Number: GB-CONCORDIA PHARMACEUTICALS INC.-E2B_00019979

PATIENT
  Age: 76 Year
  Sex: Female

DRUGS (23)
  1. OXYCODONE [Suspect]
     Active Substance: OXYCODONE
     Dosage: OXYCODONE DOSE WAS REDUCED BY 25% IN THE SYRINGE DRIVER TO 30 MG
  2. NIFEDIPINE. [Concomitant]
     Active Substance: NIFEDIPINE
  3. PARACETAMOL [Suspect]
     Active Substance: ACETAMINOPHEN
     Indication: PAIN
  4. IBUPROFEN. [Suspect]
     Active Substance: IBUPROFEN
  5. MIDAZOLAM [Suspect]
     Active Substance: MIDAZOLAM HYDROCHLORIDE
     Dosage: COMMENCED USING A SYRINGE DRIVER
  6. OXYCODONE [Suspect]
     Active Substance: OXYCODONE
     Indication: PAIN
     Route: 058
  7. OXYCODONE ER [Suspect]
     Active Substance: OXYCODONE
     Dosage: I/R 60 MG FOR BREAK THROUGH PAIN
  8. PREDNISOLONE. [Suspect]
     Active Substance: PREDNISOLONE
  9. OXYCODONE ER [Suspect]
     Active Substance: OXYCODONE
     Indication: PAIN
  10. MATRIFEN [Suspect]
     Active Substance: FENTANYL
     Dosage: TRANSDERMAL PATCH
     Route: 062
  11. DELTA D3 [Concomitant]
  12. LANSOPRAZOLE. [Concomitant]
     Active Substance: LANSOPRAZOLE
  13. CYCLIZINE [Concomitant]
     Active Substance: CYCLIZINE
  14. OXYCODONE [Suspect]
     Active Substance: OXYCODONE
  15. CARBAMAZEPINE. [Suspect]
     Active Substance: CARBAMAZEPINE
  16. SERTRALINE [Concomitant]
     Active Substance: SERTRALINE HYDROCHLORIDE
  17. TAZOSIN [Concomitant]
  18. OXYCODONE ER [Suspect]
     Active Substance: OXYCODONE
  19. SPIROMAX [Concomitant]
     Dosage: INHALER
  20. LEVOTHYROXINE. [Concomitant]
     Active Substance: LEVOTHYROXINE
  21. AROMASTIN [Concomitant]
  22. NORTRIPTYLINE [Suspect]
     Active Substance: NORTRIPTYLINE
     Indication: PAIN
  23. MOMETASONE [Concomitant]
     Active Substance: MOMETASONE

REACTIONS (4)
  - Drug hypersensitivity [Unknown]
  - Therapy non-responder [Unknown]
  - Condition aggravated [Recovering/Resolving]
  - Confusional state [Recovering/Resolving]
